FAERS Safety Report 12567105 (Version 2)
Quarter: 2016Q3

REPORT INFORMATION
  Report Type: Spontaneous
  Country: US (occurrence: US)
  Receive Date: 20160718
  Receipt Date: 20160725
  Transmission Date: 20161109
  Serious: Yes (Death, Hospitalization, Other)
  Sender: FDA-Public Use
  Company Number: US-PFIZER INC-2016340737

PATIENT
  Age: 59 Year
  Sex: Female
  Weight: 90.7 kg

DRUGS (7)
  1. HYDROMORPHONE HYDROCHLORIDE. [Suspect]
     Active Substance: HYDROMORPHONE HYDROCHLORIDE
     Dosage: UNK  (1 MG PER 1 ML AMP )
     Route: 042
     Dates: start: 20150220
  2. DILAUDID [Interacting]
     Active Substance: HYDROMORPHONE HYDROCHLORIDE
     Indication: SLEEP DISORDER
     Dosage: UNK
     Route: 042
     Dates: start: 20150220
  3. ATIVAN [Interacting]
     Active Substance: LORAZEPAM
     Indication: PAIN
     Dosage: 2MG PER ML INJECTION IN COMBINATION WITH DILAUDID
     Dates: start: 20150220
  4. ATIVAN [Interacting]
     Active Substance: LORAZEPAM
     Indication: SLEEP DISORDER
     Dosage: UNK
     Route: 042
     Dates: start: 20150213
  5. ATIVAN [Interacting]
     Active Substance: LORAZEPAM
     Indication: AGGRESSION
     Dosage: UNK
     Dates: start: 20150213
  6. HALDOL [Suspect]
     Active Substance: HALOPERIDOL
     Dosage: 1ML OF 5 MG/ML INJECTION
  7. DILAUDID [Interacting]
     Active Substance: HYDROMORPHONE HYDROCHLORIDE
     Indication: PAIN
     Dosage: UNK IN COMBINATIN WITH ATIVAN
     Dates: start: 20150220

REACTIONS (7)
  - Drug interaction [Unknown]
  - Product label issue [Unknown]
  - Sedation [Fatal]
  - Respiratory failure [Fatal]
  - Asphyxia [Fatal]
  - Pneumonia [Unknown]
  - Pain [Unknown]

NARRATIVE: CASE EVENT DATE: 20150220
